FAERS Safety Report 5455121-1 (Version None)
Quarter: 2007Q3

REPORT INFORMATION
  Report Type: 
  Country: None (occurrence: None)
  Receive Date: 20070914
  Receipt Date: 20070903
  Transmission Date: 20080115
  Serious: Yes (Other)
  Sender: FDA-Public Use
  Company Number: B0486132A

PATIENT
  Age: 61 Year
  Sex: Female

DRUGS (1)
  1. FLOVENT [Suspect]
     Indication: ASTHMA
     Dosage: INHALED
     Route: 055

REACTIONS (7)
  - EOSINOPHILIC CELLULITIS [None]
  - LYMPHOCYTE PERCENTAGE DECREASED [None]
  - MARROW HYPERPLASIA [None]
  - NEUTROPHIL PERCENTAGE INCREASED [None]
  - PLATELET COUNT DECREASED [None]
  - SCAB [None]
  - WHITE BLOOD CELL COUNT INCREASED [None]
